FAERS Safety Report 18427512 (Version 8)
Quarter: 2020Q4

REPORT INFORMATION
  Report Type: Spontaneous
  Country: US (occurrence: US)
  Receive Date: 20201026
  Receipt Date: 20201228
  Transmission Date: 20210114
  Serious: Yes (Hospitalization)
  Sender: FDA-Public Use
  Company Number: US-PFIZER INC-2018408910

PATIENT
  Age: 29 Year
  Sex: Female

DRUGS (4)
  1. PREMARIN [Suspect]
     Active Substance: ESTROGENS, CONJUGATED
     Indication: GASTROOESOPHAGEAL REFLUX DISEASE
     Dosage: 2.75 MG
     Dates: start: 1986, end: 1986
  2. PREMARIN [Suspect]
     Active Substance: ESTROGENS, CONJUGATED
     Dosage: 1 DF, DAILY (1 TABLET A DAY)
  3. PREMARIN [Suspect]
     Active Substance: ESTROGENS, CONJUGATED
     Indication: HORMONE REPLACEMENT THERAPY
     Dosage: 1.25 MG, 2X/DAY (TWO 1.25MG OF THE PREMARIN TABLET PER DAY)
     Route: 048
     Dates: start: 1986
  4. PREMARIN [Suspect]
     Active Substance: ESTROGENS, CONJUGATED
     Indication: MENOPAUSE
     Dosage: 1.25 MG, 2X/DAY (TWO 1.25MG OF THE PREMARIN TABLET PER DAY)
     Route: 048

REACTIONS (6)
  - Product use issue [Unknown]
  - Off label use [Unknown]
  - Heart rate decreased [Recovered/Resolved]
  - Drug ineffective [Unknown]
  - Product prescribing error [Unknown]
  - Feeling abnormal [Unknown]

NARRATIVE: CASE EVENT DATE: 1986
